FAERS Safety Report 24361388 (Version 1)
Quarter: 2024Q3

REPORT INFORMATION
  Report Type: Spontaneous
  Country: CN (occurrence: CN)
  Receive Date: 20240925
  Receipt Date: 20240925
  Transmission Date: 20241017
  Serious: Yes (Hospitalization)
  Sender: STRIDES
  Company Number: CN-STRIDES ARCOLAB LIMITED-2024SP012290

PATIENT
  Age: 2 Year
  Sex: Female

DRUGS (13)
  1. CYCLOSPORINE [Suspect]
     Active Substance: CYCLOSPORINE
     Indication: Immune thrombocytopenia
     Dosage: UNK
     Route: 065
     Dates: start: 202007
  2. METHOTREXATE [Suspect]
     Active Substance: METHOTREXATE
     Indication: Immune thrombocytopenia
     Dosage: 7.5 MILLIGRAM, ONCE A WEEK
     Route: 065
     Dates: start: 202005
  3. METHOTREXATE [Suspect]
     Active Substance: METHOTREXATE
     Dosage: 10 MILLIGRAM, ONCE A WEEK
     Route: 065
     Dates: start: 2020
  4. PREDNISOLONE [Suspect]
     Active Substance: PREDNISOLONE
     Indication: Immune thrombocytopenia
     Dosage: 1.5 MILLIGRAM/KILOGRAM
     Route: 065
     Dates: start: 2020
  5. ELTROMBOPAG [Suspect]
     Active Substance: ELTROMBOPAG
     Indication: Immune thrombocytopenia
     Dosage: 17.5 MILLIGRAM, QD, FOR MORE THAN 3MONTHS
     Route: 048
     Dates: start: 2020
  6. MERCAPTOPURINE [Suspect]
     Active Substance: MERCAPTOPURINE
     Indication: Immune thrombocytopenia
     Dosage: 12.5 MILLIGRAM, EVERY 3DAYS PER WEEK
     Route: 065
     Dates: start: 202005
  7. MERCAPTOPURINE [Suspect]
     Active Substance: MERCAPTOPURINE
     Dosage: 12.5 MILLIGRAM, QD
     Route: 065
     Dates: start: 2020
  8. VINCRISTINE [Suspect]
     Active Substance: VINCRISTINE
     Indication: Immune thrombocytopenia
     Dosage: 1.5 MILLIGRAM/SQ. METER
     Route: 065
     Dates: start: 2020
  9. CYCLOPHOSPHAMIDE [Suspect]
     Active Substance: CYCLOPHOSPHAMIDE
     Indication: Immune thrombocytopenia
     Dosage: 300 MILLIGRAM/SQ. METER
     Route: 065
     Dates: start: 2020
  10. LEVAMISOLE [Suspect]
     Active Substance: LEVAMISOLE
     Indication: Immune thrombocytopenia
     Dosage: 25 MILLIGRAM, QD
     Route: 065
  11. SIROLIMUS [Suspect]
     Active Substance: SIROLIMUS
     Indication: Immune thrombocytopenia
     Dosage: 0.5 MILLIGRAM, QD
     Route: 065
  12. RITUXIMAB [Concomitant]
     Active Substance: RITUXIMAB
     Indication: Immune thrombocytopenia
     Dosage: 375 MILLIGRAM/SQ. METER, ONCE A WEEK
     Route: 065
     Dates: start: 202004
  13. Immunoglobulin [Concomitant]
     Indication: Immune thrombocytopenia
     Dosage: 400 MILLIGRAM/KILOGRAM, CYCLICAL, ONCE/2WEEKS; RECEIVED 2CYCLES
     Route: 065
     Dates: start: 202005

REACTIONS (3)
  - Gingival hypertrophy [Unknown]
  - Therapy non-responder [Unknown]
  - Off label use [Unknown]

NARRATIVE: CASE EVENT DATE: 20200101
